FAERS Safety Report 22210770 (Version 2)
Quarter: 2023Q2

REPORT INFORMATION
  Report Type: Report from Study
  Country: US (occurrence: US)
  Receive Date: 20230414
  Receipt Date: 20230427
  Transmission Date: 20230722
  Serious: Yes (Hospitalization)
  Sender: FDA-Public Use
  Company Number: US-MYLANLABS-2023M1038715

PATIENT
  Age: 55 Year
  Sex: Male

DRUGS (6)
  1. CLOZAPINE [Suspect]
     Active Substance: CLOZAPINE
     Indication: Psychotic disorder
     Dosage: 450 MILLIGRAM, QD (250 MG ORAL IN AM AND 200 MG ORAL HS)
     Route: 048
     Dates: start: 20100518, end: 20230410
  2. ACETAMINOPHEN [Concomitant]
     Active Substance: ACETAMINOPHEN
     Dosage: 650 MILLIGRAM, QID (Q6H PRN)
     Route: 065
     Dates: start: 20220817
  3. VITAMIN D2 [Concomitant]
     Active Substance: ERGOCALCIFEROL
     Dosage: 1250 MICROGRAM, Q2W (1250 MCG (50,000 UNITS)
     Route: 065
  4. BISACODYL [Concomitant]
     Active Substance: BISACODYL
     Dosage: 10 MILLIGRAM (10 MG ORAL Q72 HOURS PRN)
     Route: 048
     Dates: start: 20121005
  5. LEVOTHYROXINE [Concomitant]
     Active Substance: LEVOTHYROXINE
     Dosage: 88 MICROGRAM, QD (88 MCG IN AM)
     Route: 065
     Dates: start: 20220603
  6. ROSUVASTATIN [Concomitant]
     Active Substance: ROSUVASTATIN
     Dosage: 10 MILLIGRAM, QD (10 MG HS)
     Route: 065
     Dates: start: 20230215

REACTIONS (4)
  - Hospitalisation [Unknown]
  - Therapy cessation [Unknown]
  - Treatment noncompliance [Unknown]
  - Off label use [Unknown]

NARRATIVE: CASE EVENT DATE: 20100518
